FAERS Safety Report 15403929 (Version 2)
Quarter: 2018Q4

REPORT INFORMATION
  Report Type: Spontaneous
  Country: US (occurrence: US)
  Receive Date: 20180919
  Receipt Date: 20181220
  Transmission Date: 20190204
  Serious: No
  Sender: FDA-Public Use
  Company Number: US-AVADEL SPECIALTY PHARMACEUTICALS, LLC-2018AVA00268

PATIENT
  Age: 85 Year
  Sex: Male
  Weight: 81.63 kg

DRUGS (10)
  1. NOCTIVA [Suspect]
     Active Substance: DESMOPRESSIN ACETATE
     Indication: NOCTURIA
     Dosage: 0.83 ?G SPRAY ALTERNATING NOSTRILS EVERY NIGHT
     Dates: start: 20180815, end: 20180905
  2. FINASTERIDE. [Concomitant]
     Active Substance: FINASTERIDE
  3. ATORVASTATIN [Concomitant]
     Active Substance: ATORVASTATIN
  4. IRON [Concomitant]
     Active Substance: IRON
  5. BABY ASPIRIN [Concomitant]
     Active Substance: ASPIRIN
  6. METOPROLOL TARTRATE. [Concomitant]
     Active Substance: METOPROLOL TARTRATE
  7. APPLE CIDER VINEGAR [Concomitant]
     Active Substance: APPLE CIDER VINEGAR
  8. TURMERIC [Concomitant]
     Active Substance: HERBALS\TURMERIC
  9. MULTIVITAMIN [Concomitant]
     Active Substance: VITAMINS
  10. PANTOPRAZOLE [Concomitant]
     Active Substance: PANTOPRAZOLE

REACTIONS (9)
  - Micturition urgency [Recovered/Resolved]
  - Eye irritation [Unknown]
  - Nasal discomfort [Unknown]
  - Product preparation issue [Recovered/Resolved]
  - Product use issue [Recovered/Resolved]
  - Rhinalgia [Unknown]
  - Lacrimation increased [Unknown]
  - Eye pain [Recovered/Resolved]
  - Drug effect incomplete [Recovered/Resolved]

NARRATIVE: CASE EVENT DATE: 2018
